FAERS Safety Report 7703305-1 (Version None)
Quarter: 2011Q3

REPORT INFORMATION
  Report Type: 
  Country: None (occurrence: None)
  Receive Date: 20110823
  Receipt Date: 20110810
  Transmission Date: 20111222
  Serious: Yes (Hospitalization)
  Sender: FDA-Public Use
  Company Number: FR-ELI_LILLY_AND_COMPANY-FR201108003119

PATIENT
  Age: 37 Year
  Sex: Male

DRUGS (1)
  1. ZYPREXA [Suspect]
     Dosage: UNK, UNKNOWN
     Dates: start: 20110807

REACTIONS (4)
  - HOSPITALISATION [None]
  - DRUG INEFFECTIVE [None]
  - SUSPICIOUSNESS [None]
  - PARANOIA [None]
